FAERS Safety Report 23802940 (Version 1)
Quarter: 2024Q2

REPORT INFORMATION
  Report Type: Spontaneous
  Country: US (occurrence: US)
  Receive Date: 20240501
  Receipt Date: 20240501
  Transmission Date: 20240715
  Serious: Yes (Other)
  Sender: FDA-Public Use
  Company Number: US-AMERICAN REGENT INC-2024001517

PATIENT
  Age: 35 Year

DRUGS (4)
  1. ESTRADIOL VALERATE [Suspect]
     Active Substance: ESTRADIOL VALERATE
     Indication: Transgender hormonal therapy
     Dosage: UNK
     Route: 065
  2. LEUPROLIDE ACETATE [Suspect]
     Active Substance: ISOPROPYL ALCOHOL\LEUPROLIDE ACETATE
     Indication: Transgender hormonal therapy
     Dosage: UNK
     Route: 065
  3. EMTRICITABINE\TENOFOVIR DISOPROXIL FUMARATE [Concomitant]
     Active Substance: EMTRICITABINE\TENOFOVIR DISOPROXIL FUMARATE
     Indication: Prophylaxis against HIV infection
     Dosage: UNK
     Route: 065
  4. FEXOFENADINE [FEXOFENADINE HYDROCHLORIDE] [Concomitant]
     Indication: Seasonal allergy
     Dosage: UNK
     Route: 065

REACTIONS (3)
  - Endometriosis male [Recovered/Resolved]
  - Product use issue [Unknown]
  - Product use in unapproved indication [Unknown]
